FAERS Safety Report 4973592-1 (Version None)
Quarter: 2006Q2

REPORT INFORMATION
  Report Type: 
  Country: None (occurrence: None)
  Receive Date: 20060414
  Receipt Date: 20060208
  Transmission Date: 20061013
  Serious: Yes (Other)
  Sender: FDA-Public Use
  Company Number: DE-ABBOTT-06P-062-0324536-00

PATIENT
  Sex: Female
  Weight: 68.5 kg

DRUGS (5)
  1. HUMIRA [Suspect]
     Indication: SPINAL OSTEOARTHRITIS
     Route: 058
     Dates: start: 20051216, end: 20060127
  2. METHOTREXATE [Concomitant]
     Indication: SPINAL OSTEOARTHRITIS
     Route: 058
     Dates: start: 20050601
  3. DICLOFENAC SODIUM [Concomitant]
     Indication: SPINAL OSTEOARTHRITIS
     Route: 048
  4. SIMVASTATIN [Concomitant]
     Indication: HYPERCHOLESTEROLAEMIA
     Route: 048
  5. JODTHYROX [Concomitant]
     Indication: GOITRE
     Route: 048

REACTIONS (4)
  - BLINDNESS UNILATERAL [None]
  - CEREBROSCLEROSIS [None]
  - RETINAL INFARCTION [None]
  - THALAMIC INFARCTION [None]
